FAERS Safety Report 18228791 (Version 2)
Quarter: 2020Q3

REPORT INFORMATION
  Report Type: Report from Study
  Country: IT (occurrence: IT)
  Receive Date: 20200903
  Receipt Date: 20200909
  Transmission Date: 20201103
  Serious: Yes (Hospitalization)
  Sender: FDA-Public Use
  Company Number: IT-MYLANLABS-2020M1076365

PATIENT
  Age: 39 Year
  Sex: Male

DRUGS (7)
  1. OLANZAPINE. [Suspect]
     Active Substance: OLANZAPINE
     Dosage: REINTRODUCED WITH ADDITION OF RIVOTRIL
     Dates: start: 2020
  2. CLOZAPINE. [Suspect]
     Active Substance: CLOZAPINE
     Dosage: 50 MILLIGRAM, QD
     Route: 048
     Dates: start: 20200709
  3. RIVOTRIL [Suspect]
     Active Substance: CLONAZEPAM
     Indication: PRODUCT USED FOR UNKNOWN INDICATION
     Dosage: UNK
     Dates: start: 2020
  4. CLOZAPINE. [Suspect]
     Active Substance: CLOZAPINE
     Indication: PSYCHIATRIC DECOMPENSATION
     Dosage: UNK
     Dates: start: 2018
  5. OLANZAPINE. [Suspect]
     Active Substance: OLANZAPINE
     Indication: PRODUCT USED FOR UNKNOWN INDICATION
     Dosage: UNTIL 09 JULY 2020
     Dates: end: 202007
  6. DEPAKIN [Suspect]
     Active Substance: VALPROATE SODIUM
     Dosage: 1000 MILLIGRAM, QD
     Route: 048
     Dates: start: 20200709
  7. DEPAKIN [Suspect]
     Active Substance: VALPROATE SODIUM
     Indication: BIPOLAR II DISORDER
     Dosage: UNTIL 09 JULY 2020
     Dates: start: 2007, end: 202007

REACTIONS (4)
  - Bradyphrenia [Recovering/Resolving]
  - Medication error [Recovering/Resolving]
  - Withdrawal syndrome [Recovering/Resolving]
  - Hypokinesia [Recovering/Resolving]

NARRATIVE: CASE EVENT DATE: 20200710
